FAERS Safety Report 13439292 (Version 1)
Quarter: 2017Q2

REPORT INFORMATION
  Report Type: Spontaneous
  Country: US (occurrence: US)
  Receive Date: 20170413
  Receipt Date: 20170413
  Transmission Date: 20170830
  Serious: Yes (Hospitalization)
  Sender: FDA-Public Use
  Company Number: US-BAYER-2017-067609

PATIENT
  Age: 6 Year
  Sex: Male

DRUGS (5)
  1. ABCIXIMAB [Suspect]
     Active Substance: ABCIXIMAB
  2. CLOPIDOGREL [Suspect]
     Active Substance: CLOPIDOGREL BISULFATE
  3. WARFARIN [Suspect]
     Active Substance: WARFARIN
  4. ACETYLSALICYLIC ACID({=100 MG) [Suspect]
     Active Substance: ASPIRIN
  5. ENOXAPARIN [Suspect]
     Active Substance: ENOXAPARIN

REACTIONS (2)
  - Drug administered to patient of inappropriate age [None]
  - Cerebral infarction [None]
